FAERS Safety Report 10243934 (Version 1)
Quarter: 2014Q2

REPORT INFORMATION
  Report Type: Spontaneous
  Country: IT (occurrence: IT)
  Receive Date: 20140618
  Receipt Date: 20140618
  Transmission Date: 20141212
  Serious: Yes (Hospitalization)
  Sender: FDA-Public Use
  Company Number: PHHY2014IT074528

PATIENT
  Age: 74 Year
  Sex: Male

DRUGS (3)
  1. ACETYLSALICYLIC ACID [Suspect]
     Indication: SUBCLAVIAN VEIN THROMBOSIS
     Route: 048
     Dates: end: 20140606
  2. COUMADIN [Suspect]
     Indication: SUBCLAVIAN VEIN THROMBOSIS
     Dosage: 7.5 MG, UNK
     Route: 048
     Dates: start: 20140101, end: 20140606
  3. RIOPAN [Concomitant]
     Dosage: 20 ML, UNK
     Route: 048

REACTIONS (2)
  - Anaemia [Recovering/Resolving]
  - Melaena [Recovering/Resolving]
